FAERS Safety Report 4384787-2 (Version None)
Quarter: 2004Q2

REPORT INFORMATION
  Report Type: 
  Country: None (occurrence: None)
  Receive Date: 20040621
  Receipt Date: 20040609
  Transmission Date: 20050107
  Serious: Yes (Life-Threatening, Hospitalization)
  Sender: FDA-Public Use
  Company Number: 200410319BFR

PATIENT
  Age: 78 Year
  Sex: Male
  Weight: 110 kg

DRUGS (7)
  1. BAYPRESS (NITRENDIPINE) [Suspect]
     Indication: HYPERTENSION
     Dosage: QD, ORAL
     Route: 048
     Dates: end: 20040301
  2. GLUCOR (ACARBOSE) [Suspect]
     Indication: DIABETES MELLITUS
     Dosage: 100 MG, TOTAL DAILY, ORAL
     Route: 048
     Dates: start: 20040312, end: 20040321
  3. RAMIPRIL [Suspect]
     Indication: CARDIAC FAILURE
     Dosage: ORAL
     Route: 048
     Dates: start: 20040312, end: 20040321
  4. BUMETANIDE [Suspect]
     Indication: CARDIAC FAILURE
     Dosage: ORAL
     Route: 048
  5. CORDARONE [Concomitant]
  6. DEROXAT [Concomitant]
  7. STILNOX [Concomitant]

REACTIONS (9)
  - CARDIAC FAILURE [None]
  - CONDITION AGGRAVATED [None]
  - EPISTAXIS [None]
  - HYPERHIDROSIS [None]
  - HYPOTENSION [None]
  - MALAISE [None]
  - NAUSEA [None]
  - ORTHOSTATIC HYPOTENSION [None]
  - RENAL FAILURE [None]
